FAERS Safety Report 13860707 (Version 4)
Quarter: 2017Q4

REPORT INFORMATION
  Report Type: Spontaneous
  Country: JP (occurrence: JP)
  Receive Date: 20170811
  Receipt Date: 20171018
  Transmission Date: 20180320
  Serious: Yes (Hospitalization, Other)
  Sender: FDA-Public Use
  Company Number: JP-AMGEN-JPNSP2017085173

PATIENT
  Age: 76 Year
  Sex: Female
  Weight: 33 kg

DRUGS (4)
  1. METOLATE [Suspect]
     Active Substance: METHOTREXATE
     Indication: PRODUCT USED FOR UNKNOWN INDICATION
     Dosage: 8 MG, QWK
     Route: 065
     Dates: start: 200602, end: 20120510
  2. ENBREL [Suspect]
     Active Substance: ETANERCEPT
     Indication: RHEUMATOID ARTHRITIS
     Dosage: 50 MG, WEEKLY
     Route: 058
     Dates: start: 20080604
  3. PROGRAF [Suspect]
     Active Substance: TACROLIMUS\TACROLIMUS ANHYDROUS
     Indication: RHEUMATOID ARTHRITIS
     Dosage: 1 MG, 1X/DAY
     Route: 048
     Dates: start: 20131106
  4. BONALON [Concomitant]
     Active Substance: ALENDRONATE SODIUM
     Indication: OSTEOPOROSIS
     Dosage: 35 MG, MONTHLY
     Route: 048
     Dates: start: 20090805

REACTIONS (6)
  - Interstitial lung disease [Not Recovered/Not Resolved]
  - Dyspnoea exertional [Recovered/Resolved]
  - Aortic valve stenosis [Recovering/Resolving]
  - Upper respiratory tract inflammation [Unknown]
  - Pneumonia [Recovered/Resolved]
  - Aortic aneurysm [Not Recovered/Not Resolved]

NARRATIVE: CASE EVENT DATE: 20120510
